FAERS Safety Report 13261554 (Version 1)
Quarter: 2017Q1

REPORT INFORMATION
  Report Type: Spontaneous
  Country: GB (occurrence: GB)
  Receive Date: 20170222
  Receipt Date: 20170222
  Transmission Date: 20170428
  Serious: Yes (Other)
  Sender: FDA-Public Use
  Company Number: GB-BAUSCH-BL-2017-004421

PATIENT
  Sex: Male
  Weight: 88.9 kg

DRUGS (1)
  1. MOVIPREP [Suspect]
     Active Substance: ASCORBIC ACID\POLYETHYLENE GLYCOL 3350\POTASSIUM CHLORIDE\SODIUM ASCORBATE\SODIUM CHLORIDE\SODIUM SULFATE
     Indication: BOWEL PREPARATION
     Route: 048
     Dates: start: 20170123, end: 20170123

REACTIONS (7)
  - Arthralgia [Not Recovered/Not Resolved]
  - Movement disorder [Unknown]
  - Headache [Not Recovered/Not Resolved]
  - Abasia [Unknown]
  - Peripheral swelling [Not Recovered/Not Resolved]
  - Generalised erythema [Not Recovered/Not Resolved]
  - Nervousness [Not Recovered/Not Resolved]

NARRATIVE: CASE EVENT DATE: 20170123
